FAERS Safety Report 8759958 (Version 1)
Quarter: 2012Q4

REPORT INFORMATION
  Report Type: 
  Country: JP (occurrence: JP)
  Receive Date: 20120829
  Receipt Date: 20120829
  Transmission Date: 20130627
  Serious: Yes (Other)
  Sender: FDA-Public Use
  Company Number: JP-GLAXOSMITHKLINE-B0825017A

PATIENT
  Age: 8 None
  Sex: Male

DRUGS (8)
  1. AVOLVE [Suspect]
     Indication: BENIGN PROSTATIC HYPERPLASIA
     Route: 048
     Dates: start: 2011
  2. AMLODIN [Concomitant]
     Route: 048
  3. TANATRIL [Concomitant]
     Route: 048
  4. MAINTATE [Concomitant]
     Route: 048
  5. BAYASPIRIN [Concomitant]
     Route: 048
  6. MEILAX [Concomitant]
     Route: 048
  7. CRESTOR [Concomitant]
     Route: 048
  8. MAGMITT [Concomitant]
     Route: 048

REACTIONS (3)
  - Myocardial infarction [Unknown]
  - Breast disorder [Unknown]
  - Dysuria [Unknown]
